FAERS Safety Report 11314788 (Version 3)
Quarter: 2016Q1

REPORT INFORMATION
  Report Type: Spontaneous
  Country: US (occurrence: US)
  Receive Date: 20150727
  Receipt Date: 20160217
  Transmission Date: 20160525
  Serious: No
  Sender: FDA-Public Use
  Company Number: US-GLAXOSMITHKLINE-US2015GSK100873

PATIENT
  Sex: Female

DRUGS (2)
  1. TANZEUM [Suspect]
     Active Substance: ALBIGLUTIDE
     Indication: TYPE 2 DIABETES MELLITUS
     Dosage: 50 MG, WE
     Dates: start: 201506
  2. TANZEUM [Suspect]
     Active Substance: ALBIGLUTIDE
     Dosage: 50 MG, WE
     Dates: start: 201507

REACTIONS (8)
  - Device leakage [Unknown]
  - Underdose [Unknown]
  - Skin burning sensation [Unknown]
  - Device use error [Unknown]
  - Rash erythematous [Unknown]
  - Rash pruritic [Unknown]
  - Accidental exposure to product [Unknown]
  - Product quality issue [Unknown]
